FAERS Safety Report 8990035 (Version 1)
Quarter: 2012Q4

REPORT INFORMATION
  Report Type: 
  Country: CO (occurrence: CO)
  Receive Date: 20121228
  Receipt Date: 20121228
  Transmission Date: 20130627
  Serious: Yes (Other)
  Sender: FDA-Public Use
  Company Number: CO-AMGEN-COLSP2012083293

PATIENT
  Age: 56 Year
  Sex: Female

DRUGS (3)
  1. ENBREL [Suspect]
     Indication: RHEUMATOID ARTHRITIS
     Dosage: 50 mg, weekly
     Route: 058
     Dates: start: 2004
  2. TRAMADOL [Concomitant]
     Indication: PAIN
     Dosage: 15 drops at morning and 15 drops at night dissolved in water
     Dates: start: 2011
  3. ACETAMINOPHEN [Concomitant]
     Indication: PAIN
     Dosage: 500 mg, 2 tablets at monring and 2 tablets at night
     Route: 048
     Dates: start: 2011

REACTIONS (6)
  - Immunodeficiency [Unknown]
  - Arthralgia [Not Recovered/Not Resolved]
  - Pain in extremity [Not Recovered/Not Resolved]
  - Malaise [Not Recovered/Not Resolved]
  - Hyperkeratosis [Recovering/Resolving]
  - Cystitis [Recovered/Resolved]
